FAERS Safety Report 24899752 (Version 1)
Quarter: 2025Q1

REPORT INFORMATION
  Report Type: Spontaneous
  Country: US (occurrence: US)
  Receive Date: 20250129
  Receipt Date: 20250129
  Transmission Date: 20250409
  Serious: No
  Sender: BRISTOL-MYERS SQUIBB COMPANY
  Company Number: US-BRISTOL-MYERS SQUIBB COMPANY-2025-011885

PATIENT
  Age: 78 Year
  Sex: Female
  Weight: 74.84 kg

DRUGS (4)
  1. ELIQUIS [Suspect]
     Active Substance: APIXABAN
     Indication: Thrombosis
     Route: 048
     Dates: start: 2024
  2. ELIQUIS [Suspect]
     Active Substance: APIXABAN
     Route: 048
  3. ELIQUIS [Suspect]
     Active Substance: APIXABAN
     Route: 048
  4. RINVOQ [Concomitant]
     Active Substance: UPADACITINIB
     Indication: Product used for unknown indication

REACTIONS (6)
  - Product use issue [Unknown]
  - Treatment noncompliance [Unknown]
  - Inability to afford medication [Unknown]
  - Memory impairment [Unknown]
  - Body height decreased [Unknown]
  - Injection related reaction [Unknown]

NARRATIVE: CASE EVENT DATE: 20240101
